FAERS Safety Report 5983763-3 (Version None)
Quarter: 2008Q4

REPORT INFORMATION
  Report Type: 
  Country: None (occurrence: None)
  Receive Date: 20081208
  Receipt Date: 20081203
  Transmission Date: 20090506
  Serious: Yes (Other)
  Sender: FDA-Public Use
  Company Number: US-ALLERGAN-0815379US

PATIENT
  Sex: Female

DRUGS (5)
  1. SANCTURA XR [Suspect]
     Indication: DRUG USE FOR UNKNOWN INDICATION
     Dosage: 60 MG, QAM
     Route: 048
     Dates: start: 20081129
  2. GLUCOVANCE [Concomitant]
     Indication: TYPE 2 DIABETES MELLITUS
  3. PROTONIX [Concomitant]
     Dosage: UNK, QAM
  4. SYNTHROID [Concomitant]
     Dosage: UNK, QAM
  5. VOLTAREN [Concomitant]
     Indication: OSTEOARTHRITIS

REACTIONS (3)
  - BLOOD GLUCOSE INCREASED [None]
  - DRY MOUTH [None]
  - PAIN [None]
